FAERS Safety Report 5566236-1 (Version None)
Quarter: 2007Q4

REPORT INFORMATION
  Report Type: 
  Country: None (occurrence: None)
  Receive Date: 20071219
  Receipt Date: 20071217
  Transmission Date: 20080405
  Serious: Yes (Other)
  Sender: FDA-Public Use
  Company Number: BE-BRISTOL-MYERS SQUIBB COMPANY-14002497

PATIENT
  Age: 65 Year
  Sex: Male
  Weight: 70 kg

DRUGS (1)
  1. KENACORT-A40 INJ [Suspect]
     Dosage: 1 DOSAGE FORM = APPROXIMATELY 30 MG WAS INJECTED
     Route: 014
     Dates: start: 20071203

REACTIONS (1)
  - ADVERSE EVENT [None]
